FAERS Safety Report 25738611 (Version 1)
Quarter: 2025Q3

REPORT INFORMATION
  Report Type: Spontaneous
  Country: US (occurrence: US)
  Receive Date: 20250829
  Receipt Date: 20250829
  Transmission Date: 20251021
  Serious: No
  Sender: MDD OPERATIONS
  Company Number: US-MDD US Operations-MDD202505-001852

PATIENT
  Age: 70 Year
  Sex: Male

DRUGS (4)
  1. ONAPGO [Suspect]
     Active Substance: APOMORPHINE HYDROCHLORIDE
     Indication: Parkinson^s disease
     Route: 058
  2. ONAPGO [Suspect]
     Active Substance: APOMORPHINE HYDROCHLORIDE
     Route: 058
     Dates: start: 20250514, end: 20250518
  3. ONAPGO [Suspect]
     Active Substance: APOMORPHINE HYDROCHLORIDE
     Dosage: STRENGTH (98MG/20ML) INFUSE CONTENTS OF 1 CARTRIDGE SUBCUTANEOUSLY FOR 16 HOURS OR LESS EACH DAY CON
     Route: 058
     Dates: start: 202505
  4. CARBIDOPA\LEVODOPA [Concomitant]
     Active Substance: CARBIDOPA\LEVODOPA
     Indication: Parkinson^s disease

REACTIONS (13)
  - Balance disorder [Unknown]
  - Blood pressure measurement [Recovered/Resolved]
  - Tremor [Unknown]
  - Insomnia [Not Recovered/Not Resolved]
  - Fall [Unknown]
  - Nasal injury [Unknown]
  - Fall [Recovering/Resolving]
  - Infusion site haematoma [Recovered/Resolved]
  - Incorrect dose administered [Unknown]
  - Drug dose omission by device [Unknown]
  - Device malfunction [Unknown]
  - Device breakage [Unknown]
  - Device defective [Unknown]

NARRATIVE: CASE EVENT DATE: 20250101
